FAERS Safety Report 21813332 (Version 2)
Quarter: 2023Q2

REPORT INFORMATION
  Report Type: Report from Study
  Country: US (occurrence: US)
  Receive Date: 20230103
  Receipt Date: 20230512
  Transmission Date: 20230722
  Serious: No
  Sender: FDA-Public Use
  Company Number: US-ABBVIE-4256220

PATIENT
  Sex: Female

DRUGS (2)
  1. VENCLEXTA [Suspect]
     Active Substance: VENETOCLAX
     Indication: Chloroma
     Dosage: TAKE 4 TABLET(S) BY MOUTH DAILY, FORM STRENGTH: 100 MILLIGRAM
     Route: 048
  2. CATHFLO ACTIVASE [Concomitant]
     Active Substance: ALTEPLASE
     Indication: Uterine leiomyoma
     Dosage: CLEARING AGENT

REACTIONS (1)
  - Off label use [Unknown]
